FAERS Safety Report 7414481-2 (Version None)
Quarter: 2011Q2

REPORT INFORMATION
  Report Type: 
  Country: None (occurrence: None)
  Receive Date: 20110414
  Receipt Date: 20110402
  Transmission Date: 20111010
  Serious: Yes (Other)
  Sender: FDA-Public Use
  Company Number: CN-JNJFOC-20110402333

PATIENT
  Age: 6 Month
  Sex: Male
  Weight: 7 kg

DRUGS (5)
  1. FLUCONAZOLE [Suspect]
     Dosage: 3 TABLETS PER DAY
     Route: 063
  2. VACCINES [Suspect]
     Indication: PRODUCT USED FOR UNKNOWN INDICATION
     Route: 065
  3. GYNO-DAKTARIN [Suspect]
     Route: 063
  4. FLUCONAZOLE [Suspect]
     Indication: DRUG EXPOSURE VIA BREAST MILK
     Dosage: 3 TABLETS PER DAY
     Route: 063
  5. GYNO-DAKTARIN [Suspect]
     Indication: DRUG EXPOSURE VIA BREAST MILK
     Route: 063

REACTIONS (4)
  - BREAST FEEDING [None]
  - PYREXIA [None]
  - RASH ERYTHEMATOUS [None]
  - NASOPHARYNGITIS [None]
